FAERS Safety Report 5326053-4 (Version None)
Quarter: 2007Q2

REPORT INFORMATION
  Report Type: 
  Country: None (occurrence: None)
  Receive Date: 20070516
  Receipt Date: 20070514
  Transmission Date: 20071010
  Serious: No
  Sender: FDA-Public Use
  Company Number: JP-ELI_LILLY_AND_COMPANY-JP200704002213

PATIENT
  Age: 20 Year
  Sex: Male

DRUGS (6)
  1. DEPAS [Concomitant]
     Indication: INSOMNIA
     Dosage: 0.5 MG, UNK
     Route: 048
     Dates: start: 20050930
  2. AMOBAN [Concomitant]
     Indication: INSOMNIA
     Dosage: 10 MG, UNK
     Route: 048
     Dates: start: 20050930
  3. ZYPREXA [Suspect]
     Indication: SCHIZOPHRENIA
     Dosage: 15 MG, UNK
     Route: 048
     Dates: start: 20050930, end: 20070420
  4. IMPROMEN /00568801/ [Concomitant]
     Indication: SCHIZOPHRENIA
     Dosage: 4 MG, UNK
     Route: 048
     Dates: start: 20040622
  5. AKINETON [Concomitant]
     Indication: PARKINSONISM
     Dosage: 7 MG, UNK
     Route: 048
     Dates: start: 20040607
  6. NELBON [Concomitant]
     Indication: INSOMNIA
     Dosage: 5 MG, UNK
     Route: 048
     Dates: start: 20050930

REACTIONS (1)
  - EPISTAXIS [None]
